FAERS Safety Report 25433677 (Version 1)
Quarter: 2025Q2

REPORT INFORMATION
  Report Type: Spontaneous
  Country: GB (occurrence: GB)
  Receive Date: 20250613
  Receipt Date: 20250613
  Transmission Date: 20250717
  Serious: Yes (Other)
  Sender: ELI LILLY AND COMPANY
  Company Number: GB-MHRA-TPP53556477C14387499YC1747912575348

PATIENT
  Age: 44 Year
  Sex: Female
  Weight: 141 kg

DRUGS (31)
  1. MOUNJARO [Suspect]
     Active Substance: TIRZEPATIDE
     Indication: Product used for unknown indication
     Route: 065
     Dates: start: 20250106
  2. DOXYCYCLINE [Concomitant]
     Active Substance: DOXYCYCLINE
     Indication: Product used for unknown indication
     Dosage: 1 DOSAGE FORM, DAILY
     Dates: start: 20250512, end: 20250519
  3. ALGIVON [Concomitant]
     Indication: Product used for unknown indication
     Dates: start: 20250327, end: 20250426
  4. FLUCLOXACILLIN [Concomitant]
     Active Substance: FLUCLOXACILLIN
     Indication: Product used for unknown indication
     Dosage: 1 DOSAGE FORM, EVERY 6 HRS
     Dates: start: 20250519
  5. ACTILITE [Concomitant]
     Indication: Product used for unknown indication
     Dates: start: 20250327, end: 20250426
  6. CHOLECALCIFEROL [Concomitant]
     Active Substance: CHOLECALCIFEROL
     Indication: Product used for unknown indication
     Dates: start: 20230629
  7. METFORMIN [Concomitant]
     Active Substance: METFORMIN HYDROCHLORIDE
     Indication: Product used for unknown indication
     Dosage: 2 DOSAGE FORM, BID
     Dates: start: 20230629
  8. OCTENISAN [HYETELLOSE;OCTENIDINE HYDROCHLORID [Concomitant]
     Indication: Product used for unknown indication
     Dates: start: 20230629
  9. ACETAMINOPHEN [Concomitant]
     Active Substance: ACETAMINOPHEN
     Indication: Product used for unknown indication
     Dates: start: 20230629
  10. FOLIC ACID [Concomitant]
     Active Substance: FOLIC ACID
     Indication: Product used for unknown indication
     Dosage: 1 DOSAGE FORM, DAILY
     Dates: start: 20240719
  11. PREDNISOLONE [Concomitant]
     Active Substance: PREDNISOLONE
     Indication: Product used for unknown indication
     Dosage: 1 DOSAGE FORM, DAILY
     Dates: start: 20230907
  12. AMITRIPTYLINE HYDROCHLORIDE [Concomitant]
     Active Substance: AMITRIPTYLINE HYDROCHLORIDE
     Indication: Product used for unknown indication
     Dosage: 2 DOSAGE FORM, EACH EVENING
     Dates: start: 20241216
  13. BETAMETHASONE VALERATE [Concomitant]
     Active Substance: BETAMETHASONE VALERATE
     Indication: Product used for unknown indication
     Dates: start: 20241216
  14. PREGABALIN [Concomitant]
     Active Substance: PREGABALIN
     Indication: Product used for unknown indication
     Dosage: 1 DOSAGE FORM, BID
     Dates: start: 20250130
  15. ACETAMINOPHEN\CODEINE PHOSPHATE [Concomitant]
     Active Substance: ACETAMINOPHEN\CODEINE PHOSPHATE
     Indication: Pain
     Dates: start: 20250410
  16. LEVOTHYROXINE [Concomitant]
     Active Substance: LEVOTHYROXINE
     Indication: Hypothyroidism
     Dosage: 1 DOSAGE FORM, DAILY
     Dates: start: 20250123
  17. PANTOPRAZOLE [Concomitant]
     Active Substance: PANTOPRAZOLE
     Indication: Gastrooesophageal reflux disease
     Dosage: 1 DOSAGE FORM, DAILY
     Dates: start: 20241216
  18. ATORVASTATIN [Concomitant]
     Active Substance: ATORVASTATIN
     Indication: Blood cholesterol increased
     Dosage: 1 DOSAGE FORM, DAILY
     Dates: start: 20240917
  19. DAPAGLIFLOZIN [Concomitant]
     Active Substance: DAPAGLIFLOZIN
     Indication: Product used for unknown indication
     Dates: start: 20240828
  20. AMOXICILLIN\CLAVULANATE POTASSIUM [Concomitant]
     Active Substance: AMOXICILLIN\CLAVULANATE POTASSIUM
     Indication: Infection
     Dosage: 1 DOSAGE FORM, EVERY 8 HRS
     Dates: start: 20250410, end: 20250417
  21. ICHTHAMMOL\ZINC OXIDE [Concomitant]
     Active Substance: ICHTHAMMOL\ZINC OXIDE
     Indication: Product used for unknown indication
     Dates: start: 20250327, end: 20250426
  22. ZETUVIT PLUS [Concomitant]
     Indication: Product used for unknown indication
     Dates: start: 20240321
  23. AQUACEL AG FOAM [SILICON DIOXIDE;SILVER] [Concomitant]
     Indication: Product used for unknown indication
     Dates: start: 20230629
  24. AQUACEL AG FOAM [SILICON DIOXIDE;SILVER] [Concomitant]
     Dates: start: 20240321
  25. CUTIMED [Concomitant]
     Indication: Product used for unknown indication
     Dates: start: 20230629
  26. HYDROMOL [EMULSIFYING WAX;PETROLATUM] [Concomitant]
     Indication: Product used for unknown indication
     Dates: start: 20230629
  27. KLINIDERM FOAM PHMB [Concomitant]
     Indication: Product used for unknown indication
  28. SILICON [Concomitant]
     Active Substance: SILICON
     Indication: Product used for unknown indication
     Dates: start: 20230629
  29. SILICON [Concomitant]
     Active Substance: SILICON
     Indication: Product used for unknown indication
     Dates: start: 20230629
  30. PRONTOSAN WOUND [Concomitant]
     Indication: Product used for unknown indication
     Dates: start: 20230629
  31. PRONTOSAN [POLIHEXANIDE] [Concomitant]
     Indication: Product used for unknown indication
     Dates: start: 20240629

REACTIONS (5)
  - Purpura [Recovering/Resolving]
  - Vasculitic rash [Unknown]
  - Bullous haemorrhagic dermatosis [Unknown]
  - Cutaneous vasculitis [Unknown]
  - Eczema [Unknown]

NARRATIVE: CASE EVENT DATE: 20250106
